FAERS Safety Report 19004027 (Version 2)
Quarter: 2022Q3

REPORT INFORMATION
  Report Type: Other
  Country: FR (occurrence: FR)
  Receive Date: 20210312
  Receipt Date: 20220804
  Transmission Date: 20221027
  Serious: Yes (Other)
  Sender: FDA-Public Use
  Company Number: None

PATIENT
  Age: 29 Year
  Sex: Male
  Weight: 78 kg

DRUGS (6)
  1. VISIPAQUE [Suspect]
     Active Substance: IODIXANOL
     Indication: Venogram
     Dosage: 30 ML, SINGLE
     Route: 042
     Dates: start: 20210210, end: 20210210
  2. VISIPAQUE [Suspect]
     Active Substance: IODIXANOL
     Indication: Product used for unknown indication
  3. AETOXISCLEROL [Suspect]
     Active Substance: POLIDOCANOL
     Indication: Varicocele repair
     Route: 042
     Dates: start: 20210210, end: 20210210
  4. SODIUM BICARBONATE [Concomitant]
     Active Substance: SODIUM BICARBONATE
     Route: 041
     Dates: start: 20210210, end: 20210210
  5. HEPARIN SODIUM [Concomitant]
     Active Substance: HEPARIN SODIUM
     Route: 041
     Dates: start: 20210210, end: 20210210
  6. LIDOCAINE [Concomitant]
     Active Substance: LIDOCAINE
     Indication: Local anaesthesia
     Route: 058
     Dates: start: 20210210, end: 20210210

REACTIONS (3)
  - Gastrointestinal pain [Recovered/Resolved]
  - Malaise [Recovered/Resolved]
  - Bradycardia [Recovered/Resolved]

NARRATIVE: CASE EVENT DATE: 20210210
